FAERS Safety Report 6997982-0 (Version None)
Quarter: 2010Q3

REPORT INFORMATION
  Report Type: 
  Country: None (occurrence: None)
  Receive Date: 20100920
  Receipt Date: 20100430
  Transmission Date: 20110219
  Serious: Yes (Other)
  Sender: FDA-Public Use
  Company Number: US-ASTRAZENECA-2007UW09724

PATIENT
  Age: 13115 Day
  Sex: Male
  Weight: 68 kg

DRUGS (18)
  1. SEROQUEL [Suspect]
     Indication: DEPRESSION
     Route: 048
     Dates: start: 19980101, end: 20060101
  2. SEROQUEL [Suspect]
     Indication: SCHIZOPHRENIA
     Route: 048
     Dates: start: 19980101, end: 20060101
  3. SEROQUEL [Suspect]
     Dosage: 50-200MG
     Route: 048
  4. SEROQUEL [Suspect]
     Dosage: 50-200MG
     Route: 048
  5. SEROQUEL [Suspect]
     Route: 048
     Dates: start: 19980101, end: 20061231
  6. SEROQUEL [Suspect]
     Route: 048
     Dates: start: 19980101, end: 20061231
  7. HALDOL [Concomitant]
  8. COGENTIN [Concomitant]
  9. PAXIL [Concomitant]
  10. PROZAC [Concomitant]
  11. BENADRYL [Concomitant]
  12. LEXAPRO [Concomitant]
  13. RISPERDAL [Concomitant]
     Indication: SCHIZOPHRENIA
     Dates: start: 20040501
  14. ATIVAN [Concomitant]
  15. CYMBALTA [Concomitant]
  16. AMBIEN [Concomitant]
  17. TYLENOL [Concomitant]
  18. ZYPREXA [Concomitant]
     Indication: SCHIZOPHRENIA
     Dates: start: 20020719

REACTIONS (3)
  - PANCREATITIS ACUTE [None]
  - SUICIDAL IDEATION [None]
  - TYPE 2 DIABETES MELLITUS [None]
